FAERS Safety Report 6019612-7 (Version None)
Quarter: 2008Q4

REPORT INFORMATION
  Report Type: 
  Country: None (occurrence: None)
  Receive Date: 20081224
  Receipt Date: 20081222
  Transmission Date: 20090506
  Serious: Yes (Hospitalization)
  Sender: FDA-Public Use
  Company Number: US-GILEAD-2008-0017829

PATIENT
  Sex: Male
  Weight: 113.5 kg

DRUGS (9)
  1. LETAIRIS [Suspect]
     Indication: PULMONARY ARTERIAL HYPERTENSION
     Route: 048
     Dates: start: 20080729
  2. VERAPAMIL [Concomitant]
     Route: 048
  3. PRILOSEC [Concomitant]
     Route: 048
  4. ZOCOR [Concomitant]
     Route: 048
  5. LASIX [Concomitant]
     Route: 048
  6. TOPROL-XL [Concomitant]
     Route: 048
  7. ASA-FREE [Concomitant]
     Route: 048
  8. REVATIO [Concomitant]
     Route: 048
  9. VENTAVIS [Concomitant]
     Route: 055

REACTIONS (2)
  - CHEST PAIN [None]
  - OEDEMA [None]
